FAERS Safety Report 7618779-4 (Version None)
Quarter: 2011Q3

REPORT INFORMATION
  Report Type: 
  Country: None (occurrence: None)
  Receive Date: 20110718
  Receipt Date: 20110706
  Transmission Date: 20111222
  Serious: Yes (Hospitalization)
  Sender: FDA-Public Use
  Company Number: US-JNJFOC-20110703848

PATIENT
  Sex: Male
  Weight: 92.08 kg

DRUGS (5)
  1. ANALGESIC [Concomitant]
  2. PREDNISONE [Concomitant]
  3. ANTIBIOTICS [Concomitant]
  4. ANTIDEPRESSANTS [Concomitant]
  5. REMICADE [Suspect]
     Indication: CROHN'S DISEASE
     Route: 042

REACTIONS (2)
  - OSTEOARTHRITIS [None]
  - KNEE ARTHROPLASTY [None]
